FAERS Safety Report 11702314 (Version 2)
Quarter: 2016Q2

REPORT INFORMATION
  Report Type: Spontaneous
  Country: US (occurrence: US)
  Receive Date: 20151105
  Receipt Date: 20160519
  Transmission Date: 20160815
  Serious: No
  Sender: FDA-Public Use
  Company Number: US-MDT-ADR-2015-02088

PATIENT
  Age: 61 Year
  Sex: Male

DRUGS (5)
  1. BACLOFEN. [Suspect]
     Active Substance: BACLOFEN
     Route: 037
  2. BACLOFEN. [Suspect]
     Active Substance: BACLOFEN
     Route: 037
     Dates: start: 20151009
  3. BACLOFEN. [Suspect]
     Active Substance: BACLOFEN
     Route: 037
  4. BACLOFEN. [Suspect]
     Active Substance: BACLOFEN
     Route: 048
  5. BACLOFEN. [Suspect]
     Active Substance: BACLOFEN
     Route: 037

REACTIONS (5)
  - Muscle spasms [Unknown]
  - Muscle spasticity [Unknown]
  - Muscle tightness [Unknown]
  - No therapeutic response [Unknown]
  - Adverse drug reaction [Unknown]

NARRATIVE: CASE EVENT DATE: 20151009
